FAERS Safety Report 13740138 (Version 1)
Quarter: 2017Q3

REPORT INFORMATION
  Report Type: Spontaneous
  Country: US (occurrence: US)
  Receive Date: 20170710
  Receipt Date: 20170710
  Transmission Date: 20171127
  Serious: Yes (Life-Threatening, Hospitalization, Disabling, Other)
  Sender: FDA-Public Use
  Company Number: None

PATIENT
  Age: 47 Year
  Sex: Female
  Weight: 65.25 kg

DRUGS (4)
  1. CLONAZEPAM. [Suspect]
     Active Substance: CLONAZEPAM
     Indication: INSOMNIA
     Dosage: ?          OTHER STRENGTH:MG;QUANTITY:1 TABLET(S);?
     Route: 048
  2. CLONAZEPAM. [Suspect]
     Active Substance: CLONAZEPAM
     Indication: GENERALISED ANXIETY DISORDER
     Dosage: ?          OTHER STRENGTH:MG;QUANTITY:1 TABLET(S);?
     Route: 048
  3. CITALOPRAM [Concomitant]
     Active Substance: CITALOPRAM HYDROBROMIDE
  4. LEXAPRO [Concomitant]
     Active Substance: ESCITALOPRAM OXALATE

REACTIONS (21)
  - Disturbance in attention [None]
  - Suicidal ideation [None]
  - Blindness [None]
  - Tinnitus [None]
  - Hypoaesthesia [None]
  - Psychosexual disorder [None]
  - Fatigue [None]
  - Hyperhidrosis [None]
  - Fear [None]
  - Anxiety [None]
  - Drug withdrawal syndrome [None]
  - Neuralgia [None]
  - Pain [None]
  - Cognitive disorder [None]
  - Insomnia [None]
  - Depression [None]
  - Muscle spasms [None]
  - Dizziness [None]
  - Alopecia [None]
  - Memory impairment [None]
  - Asthenia [None]

NARRATIVE: CASE EVENT DATE: 20160923
